FAERS Safety Report 8237795-5 (Version None)
Quarter: 2012Q1

REPORT INFORMATION
  Report Type: 
  Country: None (occurrence: None)
  Receive Date: 20120327
  Receipt Date: 20120323
  Transmission Date: 20120608
  Serious: No
  Sender: FDA-Public Use
  Company Number: US-PFIZER INC-2012076161

PATIENT
  Sex: Female
  Weight: 38.1 kg

DRUGS (2)
  1. GENOTROPIN [Suspect]
     Indication: TURNER'S SYNDROME
     Dosage: 2 MG, 1X/DAY
     Dates: start: 20120301, end: 20120322
  2. CONCERTA [Concomitant]
     Indication: ATTENTION DEFICIT/HYPERACTIVITY DISORDER
     Dosage: UNK

REACTIONS (3)
  - NAUSEA [None]
  - PRODUCT ODOUR ABNORMAL [None]
  - VOMITING [None]
